FAERS Safety Report 8535963-6 (Version None)
Quarter: 2012Q3

REPORT INFORMATION
  Report Type: 
  Country: None (occurrence: None)
  Receive Date: 20120725
  Receipt Date: 20120719
  Transmission Date: 20120928
  Serious: Yes (Death, Other)
  Sender: FDA-Public Use
  Company Number: PHHY2012DE062925

PATIENT
  Age: 75 Year
  Sex: Female

DRUGS (4)
  1. EVEROLIMUS [Suspect]
     Indication: HEART TRANSPLANT
     Dosage: UNK UKN, UNK
  2. INSULIN [Concomitant]
     Dosage: UNK UKN, UNK
  3. MYCOPHENOLATE MOFETIL [Concomitant]
  4. PREDNISOLONE [Concomitant]

REACTIONS (5)
  - INTESTINAL ISCHAEMIA [None]
  - ERYTHEMA [None]
  - LYMPHOEDEMA [None]
  - PERITONITIS [None]
  - BREAST PAIN [None]
